FAERS Safety Report 4609108-9 (Version None)
Quarter: 2005Q1

REPORT INFORMATION
  Report Type: 
  Country: None (occurrence: None)
  Receive Date: 20050311
  Receipt Date: 20050226
  Transmission Date: 20050727
  Serious: Yes (Hospitalization)
  Sender: FDA-Public Use
  Company Number: 430003M05FRA

PATIENT
  Age: 7 Year
  Sex: Female

DRUGS (11)
  1. NOVANTRONE [Suspect]
     Indication: ACUTE LEUKAEMIA
     Dosage: 12 MG/M2, 1 IN 1 DAYS, INTRAVENOUS
     Route: 042
     Dates: start: 20040310, end: 20040314
  2. AMSACRINE (AMSACRINE) [Suspect]
     Indication: ACUTE LEUKAEMIA
     Dosage: 100 MG/M2, 1 IN 1 DAYS, INTRAVENOUS
     Route: 042
     Dates: start: 20040427, end: 20040429
  3. CYTARABINE [Suspect]
     Indication: ACUTE LEUKAEMIA
     Dosage: SEE IMAGE
     Route: 042
     Dates: start: 20040310, end: 20040316
  4. CYTARABINE [Suspect]
     Indication: ACUTE LEUKAEMIA
     Dosage: SEE IMAGE
     Route: 042
     Dates: start: 20040330, end: 20040330
  5. CYTARABINE [Suspect]
     Indication: ACUTE LEUKAEMIA
     Dosage: SEE IMAGE
     Route: 042
     Dates: start: 20040427, end: 20040429
  6. CYTARABINE [Suspect]
     Indication: ACUTE LEUKAEMIA
     Dosage: SEE IMAGE
     Route: 042
     Dates: start: 20040524, end: 20040527
  7. CYTARABINE [Suspect]
     Indication: ACUTE LEUKAEMIA
     Dosage: SEE IMAGE
     Route: 042
     Dates: start: 20040629, end: 20040707
  8. CYTARABINE [Suspect]
     Indication: ACUTE LEUKAEMIA
     Dosage: SEE IMAGE
     Route: 042
     Dates: start: 20041214, end: 20041219
  9. DAUNORUBICIN HYDROCHLORIDE [Suspect]
     Indication: ACUTE LEUKAEMIA
     Dosage: 40 MG/M2, 1 IN 1 DAYS, INTRAVENOUS
     Route: 042
     Dates: start: 20040524, end: 20040527
  10. FLUDARABINE PHOSPHATE [Suspect]
     Indication: ACUTE LEUKAEMIA
     Dosage: 28 MG, 1 IN 1 DAYS, INTRAVENOUS
     Route: 042
     Dates: start: 20041214, end: 20041218
  11. IDARUBICIN HCL [Suspect]
     Indication: ACUTE LEUKAEMIA
     Dosage: INTRAVENOUS
     Route: 042
     Dates: start: 20040310, end: 20040316

REACTIONS (1)
  - CARDIAC FAILURE CONGESTIVE [None]
